FAERS Safety Report 9348490 (Version 3)
Quarter: 2013Q3

REPORT INFORMATION
  Report Type: Spontaneous
  Country: FR (occurrence: FR)
  Receive Date: 20130614
  Receipt Date: 20130708
  Transmission Date: 20140515
  Serious: Yes (Death, Hospitalization, Other)
  Sender: FDA-Public Use
  Company Number: FR-TEVA-411411ISR

PATIENT
  Age: 101 Year
  Sex: Female

DRUGS (7)
  1. FUROSEMIDE TEVA 40 MG [Suspect]
     Indication: CARDIAC FAILURE
     Dosage: 1.5 DOSAGE FORMS DAILY; SCORED TABLET, AT LEAST SINCE 2008
     Route: 048
  2. NITRIDERM [Concomitant]
  3. DUOPLAVIN [Concomitant]
  4. AMOXICILLIN SODIUM W/CLAVULANATE POTASSIUM [Concomitant]
  5. UVEDOSE [Concomitant]
  6. VENTOLINE [Concomitant]
  7. CARDENSIEL [Concomitant]

REACTIONS (12)
  - Death [Fatal]
  - Bronchial obstruction [Fatal]
  - Coma [Fatal]
  - Somnolence [Unknown]
  - Cardiac failure [Unknown]
  - Leukocytosis [Unknown]
  - Inflammation [Unknown]
  - Diarrhoea [Unknown]
  - Lung disorder [Unknown]
  - Somnolence [Unknown]
  - Somnolence [Unknown]
  - Cough [Unknown]
